FAERS Safety Report 4490450-X (Version None)
Quarter: 2004Q4

REPORT INFORMATION
  Report Type: 
  Country: None (occurrence: None)
  Receive Date: 20041028
  Receipt Date: 20041013
  Transmission Date: 20050328
  Serious: Yes (Hospitalization, Disabling, Other)
  Sender: FDA-Public Use
  Company Number: 200410465BFR

PATIENT
  Age: 64 Year
  Sex: Male
  Weight: 73 kg

DRUGS (8)
  1. IZILOX (MOXIFLOXACIN HYDROCHLORIDE) [Suspect]
     Indication: BRONCHITIS CHRONIC
     Dosage: 400 MG, TOTAL DAILY, ORAL
     Route: 048
     Dates: start: 20040826, end: 20040830
  2. KETEK [Concomitant]
  3. PREVISCAN [Concomitant]
  4. COZAAR [Concomitant]
  5. AMIODARONE HYDROCHLORIDE [Concomitant]
  6. CALCIPARINE [Concomitant]
  7. CELESTENE [Concomitant]
  8. COMBIVENT [Concomitant]

REACTIONS (4)
  - ABNORMAL BEHAVIOUR [None]
  - HAEMOTHORAX [None]
  - INSOMNIA [None]
  - TENDON RUPTURE [None]
